FAERS Safety Report 22518886 (Version 2)
Quarter: 2023Q2

REPORT INFORMATION
  Report Type: Spontaneous
  Country: US (occurrence: US)
  Receive Date: 20230605
  Receipt Date: 20230614
  Transmission Date: 20230721
  Serious: Yes (Other)
  Sender: FDA-Public Use
  Company Number: US-MLMSERVICE-20230523-4301308-1

PATIENT
  Age: 65 Year
  Sex: Female

DRUGS (3)
  1. HYALURONIDASE [Suspect]
     Active Substance: HYALURONIDASE
     Indication: Sedation
     Dosage: 200 IU
     Route: 042
  2. LIDOCAINE [Suspect]
     Active Substance: LIDOCAINE
     Indication: Sedation
     Dosage: 5 ML
     Route: 042
  3. BUPIVACAINE [Suspect]
     Active Substance: BUPIVACAINE
     Indication: Sedation
     Dosage: 5 ML
     Route: 042

REACTIONS (8)
  - Purtscher retinopathy [Recovering/Resolving]
  - Intraocular pressure fluctuation [Recovering/Resolving]
  - Corneal oedema [Recovering/Resolving]
  - Retinal white dots syndrome [Recovering/Resolving]
  - Retinal haemorrhage [Recovering/Resolving]
  - Macular oedema [Recovering/Resolving]
  - Subretinal fluid [Recovering/Resolving]
  - Macular ischaemia [Recovering/Resolving]
